FAERS Safety Report 17446268 (Version 3)
Quarter: 2020Q1

REPORT INFORMATION
  Report Type: Spontaneous
  Country: US (occurrence: US)
  Receive Date: 20200221
  Receipt Date: 20200320
  Transmission Date: 20200409
  Serious: Yes (Hospitalization)
  Sender: FDA-Public Use
  Company Number: US-VERTEX PHARMACEUTICALS-2020-003151

PATIENT
  Age: 22 Year
  Sex: Female

DRUGS (2)
  1. PULMOZYME [Concomitant]
     Active Substance: DORNASE ALFA
  2. TRIKAFTA [Suspect]
     Active Substance: ELEXACAFTOR\IVACAFTOR\TEZACAFTOR
     Indication: CYSTIC FIBROSIS
     Dosage: 2 TABS (ELEXACAFTOR 100MG/TEZACAFTOR 50 MG/IVACAFTOR 75 MG) AM AND 1 TAB (IVACAFTOR 150MG) PM
     Route: 048
     Dates: start: 20200116, end: 20200204

REACTIONS (4)
  - Rash [Recovered/Resolved]
  - Productive cough [Unknown]
  - Abdominal pain upper [Unknown]
  - Urticaria [Recovered/Resolved]

NARRATIVE: CASE EVENT DATE: 20200204
